FAERS Safety Report 9393586 (Version 6)
Quarter: 2013Q4

REPORT INFORMATION
  Report Type: Report from Study
  Country: JP (occurrence: JP)
  Receive Date: 20130710
  Receipt Date: 20131204
  Transmission Date: 20140711
  Serious: Yes (Other)
  Sender: FDA-Public Use
  Company Number: JP-PFIZER INC-2013194865

PATIENT
  Age: 46 Year
  Sex: Male
  Weight: 70.5 kg

DRUGS (5)
  1. TOFACITINIB CITRATE [Suspect]
     Indication: PSORIASIS
     Dosage: 10 MG, 2X/DAY
     Route: 048
     Dates: start: 20120611, end: 20121002
  2. TOFACITINIB CITRATE [Suspect]
     Dosage: 10 MG, 2X/DAY
     Route: 048
     Dates: start: 20121002, end: 20130613
  3. CANDESARTAN CILEXETIL [Concomitant]
     Indication: HYPERTENSION
     Dosage: 8 MG, 1X/DAY
     Route: 048
     Dates: start: 20121002
  4. MECOBALAMIN [Concomitant]
     Indication: POST HERPETIC NEURALGIA
     Dosage: 500 UG, 3X/DAY
     Route: 048
     Dates: start: 20130312, end: 20130612
  5. BEPOTASTINE BESILATE [Concomitant]
     Indication: ECZEMA
     Dosage: 20 MG, 2X/DAY
     Route: 048
     Dates: start: 20121221

REACTIONS (2)
  - Impetigo [Recovered/Resolved]
  - Erythrodermic psoriasis [Recovering/Resolving]
